FAERS Safety Report 8062690-4 (Version None)
Quarter: 2012Q1

REPORT INFORMATION
  Report Type: 
  Country: None (occurrence: None)
  Receive Date: 20120123
  Receipt Date: 20120119
  Transmission Date: 20120608
  Serious: Yes (Death, Hospitalization)
  Sender: FDA-Public Use
  Company Number: BE-B.I. PHARMACEUTICALS,INC./RIDGEFIELD-2012-BL-00040BL

PATIENT
  Sex: Female
  Weight: 41 kg

DRUGS (3)
  1. ASPIRIN [Suspect]
     Dosage: 80 MG
     Route: 048
  2. PRADAXA [Suspect]
     Indication: ATRIAL FIBRILLATION
     Dosage: 220 MG
     Route: 048
     Dates: start: 20111115, end: 20120109
  3. LEVOTHYROXINE SODIUM [Concomitant]
     Dosage: 75 MG
     Route: 048

REACTIONS (5)
  - CEREBRAL HAEMORRHAGE [None]
  - ORAL CANDIDIASIS [None]
  - BRAIN OEDEMA [None]
  - ATRIAL FIBRILLATION [None]
  - PNEUMONIA [None]
